FAERS Safety Report 13637474 (Version 1)
Quarter: 2017Q2

REPORT INFORMATION
  Report Type: Spontaneous
  Country: US (occurrence: US)
  Receive Date: 20170608
  Receipt Date: 20170608
  Transmission Date: 20170830
  Serious: No
  Sender: FDA-Public Use
  Company Number: None

PATIENT
  Sex: Female

DRUGS (1)
  1. HUMIRA [Suspect]
     Active Substance: ADALIMUMAB
     Indication: SACROILIITIS
     Dosage: 1 PEN (40MG) EVERY 2 WEEKS SUBCUTANEOUSLY
     Route: 058
     Dates: start: 20170110

REACTIONS (1)
  - Dizziness [None]
